FAERS Safety Report 9499725 (Version 1)
Quarter: 2013Q3

REPORT INFORMATION
  Report Type: Spontaneous
  Country: ES (occurrence: None)
  Receive Date: 20130903
  Receipt Date: 20130903
  Transmission Date: 20140515
  Serious: Yes (Other)
  Sender: FDA-Public Use
  Company Number: IPC201308-000337

PATIENT
  Age: 51 Year
  Sex: Female

DRUGS (5)
  1. FUROSEMIDE [Suspect]
  2. DEFLAZACORT [Suspect]
  3. SIMVASTATIN [Suspect]
  4. FLUOXETINE [Suspect]
  5. OMEPRAZOLE [Suspect]

REACTIONS (4)
  - Gouty tophus [None]
  - Panniculitis lobular [None]
  - Blood cholesterol increased [None]
  - Joint swelling [None]
